FAERS Safety Report 5763758-5 (Version None)
Quarter: 2008Q2

REPORT INFORMATION
  Report Type: 
  Country: None (occurrence: None)
  Receive Date: 20080529
  Receipt Date: 20080418
  Transmission Date: 20081010
  Serious: No
  Sender: FDA-Public Use
  Company Number: 309221

PATIENT
  Age: 37 Year
  Sex: Male
  Weight: 63.64 kg

DRUGS (1)
  1. VEREGEN [Suspect]
     Indication: ANOGENITAL WARTS
     Dosage: TOPICAL THREE TIMES DAILY
     Dates: start: 20080218

REACTIONS (1)
  - BLOOD GLUCOSE INCREASED [None]
